FAERS Safety Report 11820473 (Version 1)
Quarter: 2015Q4

REPORT INFORMATION
  Report Type: Spontaneous
  Country: US (occurrence: US)
  Receive Date: 20151210
  Receipt Date: 20151210
  Transmission Date: 20160305
  Serious: Yes (Other)
  Sender: FDA-Public Use
  Company Number: US-JNJFOC-20150620061

PATIENT
  Age: 55 Year
  Sex: Male

DRUGS (5)
  1. VITAMIN C [Concomitant]
     Active Substance: ASCORBIC ACID
  2. IMBRUVICA [Suspect]
     Active Substance: IBRUTINIB
     Indication: MANTLE CELL LYMPHOMA
     Route: 048
     Dates: start: 20131214
  3. LEVAQUIN [Concomitant]
     Active Substance: LEVOFLOXACIN
  4. ANDROGEL [Concomitant]
     Active Substance: TESTOSTERONE
  5. IRON [Concomitant]
     Active Substance: IRON

REACTIONS (2)
  - Incorrect dose administered [Not Recovered/Not Resolved]
  - Osteomyelitis [Unknown]

NARRATIVE: CASE EVENT DATE: 20131214
